FAERS Safety Report 8413380-7 (Version None)
Quarter: 2012Q2

REPORT INFORMATION
  Report Type: 
  Country: None (occurrence: None)
  Receive Date: 20120605
  Receipt Date: 20120525
  Transmission Date: 20120825
  Serious: Yes (Hospitalization, Disabling, Other)
  Sender: FDA-Public Use
  Company Number: PHHY2012CA041473

PATIENT
  Sex: Female
  Weight: 50 kg

DRUGS (4)
  1. AMIODARONE HCL [Suspect]
     Dosage: 60 MG/H, DURING 8 HOURS
     Dates: start: 20120510, end: 20120510
  2. AMIODARONE HCL [Suspect]
     Dosage: 60 MG/H, DURING NEXT 16 HOURS
     Dates: start: 20120510, end: 20120511
  3. AMIODARONE HCL [Suspect]
     Indication: ATRIAL FIBRILLATION
     Dosage: 150 MG, ONCE/SINGLE OVERE 20 MINUTES
     Route: 040
     Dates: start: 20120510, end: 20120510
  4. AMIODARONE HCL [Suspect]
     Route: 048

REACTIONS (13)
  - THROMBOPHLEBITIS [None]
  - INJECTION SITE WARMTH [None]
  - SKIN OEDEMA [None]
  - CONDITION AGGRAVATED [None]
  - PHLEBITIS [None]
  - INFUSION SITE EXTRAVASATION [None]
  - INFECTION [None]
  - INJECTION SITE DISCHARGE [None]
  - MOBILITY DECREASED [None]
  - THROMBOSIS [None]
  - INJECTION SITE ERYTHEMA [None]
  - INJECTION SITE PAIN [None]
  - VEIN DISORDER [None]
